FAERS Safety Report 8415016-8 (Version None)
Quarter: 2012Q2

REPORT INFORMATION
  Report Type: 
  Country: None (occurrence: None)
  Receive Date: 20120606
  Receipt Date: 20120524
  Transmission Date: 20120825
  Serious: Yes (Other)
  Sender: FDA-Public Use
  Company Number: CA-JNJFOC-20120314882

PATIENT
  Sex: Male
  Weight: 75 kg

DRUGS (12)
  1. ASPIRIN [Concomitant]
     Route: 065
  2. REMICADE [Suspect]
     Route: 042
     Dates: start: 20050101
  3. TYLENOL W/ CODEINE NO. 3 [Concomitant]
     Route: 065
  4. CLONAZEPAM [Concomitant]
     Route: 065
  5. PANTOPRAZOLE SODIUM [Concomitant]
     Route: 065
  6. METHOTREXATE [Concomitant]
     Route: 065
  7. RABEPRAZOLE SODIUM [Concomitant]
     Route: 065
  8. VITAMIN B-12 [Concomitant]
     Route: 065
  9. REMICADE [Suspect]
     Indication: RHEUMATOID ARTHRITIS
     Route: 042
     Dates: start: 20120329
  10. REMICADE [Suspect]
     Route: 042
     Dates: start: 20000101
  11. CRESTOR [Concomitant]
     Route: 065
  12. ATENOLOL [Concomitant]
     Route: 065

REACTIONS (6)
  - CORONARY ARTERY OCCLUSION [None]
  - TOOTH DISORDER [None]
  - HEART RATE IRREGULAR [None]
  - HYPERSOMNIA [None]
  - TACHYCARDIA [None]
  - CHEST PAIN [None]
